FAERS Safety Report 9037159 (Version 2)
Quarter: 2013Q1

REPORT INFORMATION
  Report Type: Spontaneous
  Country: US (occurrence: None)
  Receive Date: 20130109
  Receipt Date: 20130212
  Transmission Date: 20140127
  Serious: Yes (Hospitalization, Other)
  Sender: FDA-Public Use
  Company Number: 2012PROUSA02420

PATIENT
  Age: 70 Year
  Sex: Male
  Weight: 128.8 kg

DRUGS (3)
  1. PROVENGE (SIPLULEUCEL-T) SUSPENSION, 250ML [Suspect]
     Indication: PROSTATE CANCER METASTATIC
     Route: 042
     Dates: start: 20120730, end: 20120730
  2. CASODEX (BICALUTAMIDE) [Concomitant]
  3. COUMADIN (WARFARIN SODIUM) [Concomitant]

REACTIONS (4)
  - Thrombosis [None]
  - Jugular vein thrombosis [None]
  - Superior vena cava syndrome [None]
  - Deep vein thrombosis [None]
